FAERS Safety Report 4678213-3 (Version None)
Quarter: 2005Q2

REPORT INFORMATION
  Report Type: 
  Country: None (occurrence: None)
  Receive Date: 20050527
  Receipt Date: 20050517
  Transmission Date: 20051028
  Serious: Yes (Death)
  Sender: FDA-Public Use
  Company Number: 2005072441

PATIENT
  Age: 59 Year
  Sex: Male

DRUGS (6)
  1. CABERGOLINE [Suspect]
     Indication: PARKINSON'S DISEASE
     Dosage: 0.5 MG (DAILY),ORAL
     Route: 048
     Dates: start: 19991005, end: 19991019
  2. EC DOPARL (BENSERAZIDE HYDROCHLORIDE, LEVODOPA) [Concomitant]
  3. PERMAX [Concomitant]
  4. DILAZEP DIHYDROCHLORIDE (DILAZEP DIHYDROCHLORIDE) [Concomitant]
  5. URALYT (ARNICA EXTRACT, CONVALLARIA GLYCOSIDES, ECHINACEA ANGUSTIFOLIA [Concomitant]
  6. ALLOPURINOL [Concomitant]

REACTIONS (3)
  - HALLUCINATION [None]
  - MYOCARDIAL INFARCTION [None]
  - RENAL IMPAIRMENT [None]
